FAERS Safety Report 4732780-X (Version None)
Quarter: 2005Q3

REPORT INFORMATION
  Report Type: 
  Country: None (occurrence: None)
  Receive Date: 20050803
  Receipt Date: 20050728
  Transmission Date: 20060218
  Serious: Yes (Hospitalization)
  Sender: FDA-Public Use
  Company Number: 200512580FR

PATIENT
  Age: 59 Year
  Sex: Male

DRUGS (9)
  1. TAXOTERE [Suspect]
     Indication: PROSTATE CANCER
     Dates: start: 20050311
  2. TRIFLUCAN [Suspect]
     Dates: start: 20050502
  3. ZOLADEX [Suspect]
     Dates: start: 20050301
  4. PREDNISOLONE [Suspect]
     Dates: start: 20050301
  5. CASODEX [Suspect]
     Dates: start: 20050301
  6. ZOMETA [Suspect]
     Dates: start: 20050301
  7. NEXIUM [Concomitant]
  8. SKENAN [Concomitant]
  9. ZELITREX [Concomitant]

REACTIONS (4)
  - DERMATITIS EXFOLIATIVE [None]
  - MUCOSAL INFLAMMATION [None]
  - PSORIASIS [None]
  - TREATMENT NONCOMPLIANCE [None]
